FAERS Safety Report 23843051 (Version 1)
Quarter: 2024Q2

REPORT INFORMATION
  Report Type: Other
  Country: ES (occurrence: ES)
  Receive Date: 20240510
  Receipt Date: 20240510
  Transmission Date: 20240715
  Serious: Yes (Hospitalization)
  Sender: FDA-Public Use
  Company Number: ES-B.Braun Medical Inc.-2156855

PATIENT
  Age: 3 Month
  Sex: Female

DRUGS (6)
  1. HEPARIN SODIUM IN DEXTROSE [Suspect]
     Active Substance: HEPARIN SODIUM
     Indication: Anticoagulant therapy
  2. UNSPECIFIED INGREDIENT [Suspect]
     Active Substance: UNSPECIFIED INGREDIENT
  3. AMINO ACIDS\DEXTROSE\ELECTROLYTES NOS [Concomitant]
     Active Substance: AMINO ACIDS\DEXTROSE\ELECTROLYTES NOS
  4. ALBUMIN HUMAN [Concomitant]
     Active Substance: ALBUMIN HUMAN
  5. WARFARIN [Suspect]
     Active Substance: WARFARIN
  6. ENOXAPARIN [Suspect]
     Active Substance: ENOXAPARIN

REACTIONS (1)
  - Drug ineffective [Unknown]
